FAERS Safety Report 15230595 (Version 1)
Quarter: 2018Q3

REPORT INFORMATION
  Report Type: Spontaneous
  Country: US (occurrence: US)
  Receive Date: 20180802
  Receipt Date: 20180802
  Transmission Date: 20181010
  Serious: No
  Sender: FDA-Public Use
  Company Number: US-BAYER-2018-144931

PATIENT
  Age: 77 Year
  Sex: Female
  Weight: 71.97 kg

DRUGS (1)
  1. MIRALAX [Suspect]
     Active Substance: POLYETHYLENE GLYCOL 3350
     Indication: COLONOSCOPY
     Dosage: 238 GMS MIXED WITH LIQUID DOSE
     Route: 048

REACTIONS (4)
  - Product prescribing issue [None]
  - Off label use [Unknown]
  - Drug administration error [None]
  - Incorrect dosage administered [Unknown]
